FAERS Safety Report 9699187 (Version 1)
Quarter: 2013Q4

REPORT INFORMATION
  Report Type: Spontaneous
  Country: US (occurrence: US)
  Receive Date: 20131120
  Receipt Date: 20131120
  Transmission Date: 20140711
  Serious: No
  Sender: FDA-Public Use
  Company Number: US-GILEAD-2008-0015089

PATIENT
  Age: 78 Year
  Sex: Female

DRUGS (11)
  1. LETAIRIS [Suspect]
     Indication: PULMONARY ARTERIAL HYPERTENSION
     Route: 048
     Dates: start: 20071211, end: 20080111
  2. FUROSEMIDE [Concomitant]
  3. LISINOPRIL [Concomitant]
  4. ATENOLOL [Concomitant]
  5. AMLODIPINE [Concomitant]
  6. BENICAR [Concomitant]
  7. GLIPIZIDE [Concomitant]
     Dates: start: 20070724
  8. AVANDAMET [Concomitant]
  9. ASPIRIN [Concomitant]
  10. VYTORIN [Concomitant]
  11. HECTORAL [Concomitant]
     Dosage: EVERY OTHER DAY
     Dates: start: 20070724

REACTIONS (3)
  - Epistaxis [Unknown]
  - Hypoaesthesia [Unknown]
  - Nasal congestion [Unknown]
